FAERS Safety Report 25725193 (Version 1)
Quarter: 2025Q3

REPORT INFORMATION
  Report Type: Spontaneous
  Country: US (occurrence: US)
  Receive Date: 20250826
  Receipt Date: 20250826
  Transmission Date: 20251021
  Serious: No
  Sender: CURIUM PHARMACEUTICALS
  Company Number: US-CURIUM-2025000507

PATIENT
  Age: 41 Year
  Sex: Male

DRUGS (4)
  1. IOFLUPANE I-123 [Suspect]
     Active Substance: IOFLUPANE I-123
     Indication: Dopamine transporter scintigraphy
     Route: 051
     Dates: start: 20250715, end: 20250715
  2. IOFLUPANE I-123 [Suspect]
     Active Substance: IOFLUPANE I-123
     Indication: Dopamine transporter scintigraphy
     Route: 051
     Dates: start: 20250725, end: 20250725
  3. POTASSIUM IODIDE [Concomitant]
     Active Substance: POTASSIUM IODIDE
     Indication: Dopamine transporter scintigraphy
     Route: 048
     Dates: start: 20250715, end: 20250715
  4. CARBIDOPA\LEVODOPA [Concomitant]
     Active Substance: CARBIDOPA\LEVODOPA
     Indication: Product used for unknown indication
     Route: 048

REACTIONS (2)
  - Drug ineffective [Recovered/Resolved]
  - Dopamine transporter scintigraphy abnormal [Not Recovered/Not Resolved]

NARRATIVE: CASE EVENT DATE: 20250715
